FAERS Safety Report 15196734 (Version 1)
Quarter: 2018Q3

REPORT INFORMATION
  Report Type: Spontaneous
  Country: US (occurrence: US)
  Receive Date: 20180725
  Receipt Date: 20180725
  Transmission Date: 20181010
  Serious: Yes (Other)
  Sender: FDA-Public Use
  Company Number: US-ASTRAZENECA-2018SE91950

PATIENT
  Sex: Male

DRUGS (3)
  1. SEROQUEL [Suspect]
     Active Substance: QUETIAPINE FUMARATE
     Route: 048
  2. RIBAVIRIN. [Suspect]
     Active Substance: RIBAVIRIN
     Indication: HEPATITIS C
     Route: 048
     Dates: start: 2002, end: 2003
  3. INTERFERON [Suspect]
     Active Substance: INTERFERON
     Indication: HEPATITIS C
     Route: 065
     Dates: start: 2002, end: 2003

REACTIONS (8)
  - Ascites [Unknown]
  - Hepatic cirrhosis [Unknown]
  - Weight decreased [Unknown]
  - Feeling abnormal [Unknown]
  - Memory impairment [Unknown]
  - Umbilical hernia [Unknown]
  - Hepatic encephalopathy [Unknown]
  - Anger [Unknown]
